FAERS Safety Report 8600060-8 (Version None)
Quarter: 2012Q3

REPORT INFORMATION
  Report Type: 
  Country: None (occurrence: None)
  Receive Date: 20120816
  Receipt Date: 20120809
  Transmission Date: 20120928
  Serious: Yes (Hospitalization, Other)
  Sender: FDA-Public Use
  Company Number: US-BAXTER-2012BAX007854

PATIENT
  Sex: Male
  Weight: 62.834 kg

DRUGS (2)
  1. DIANEAL [Suspect]
     Route: 033
     Dates: start: 20100901
  2. DIANEAL LOW CALCIUM W/ DEXTROSE 1.5% [Suspect]
     Route: 033
     Dates: start: 20100901

REACTIONS (6)
  - BONE PAIN [None]
  - MALAISE [None]
  - ASTHENIA [None]
  - GALLBLADDER DISORDER [None]
  - HYPOTENSION [None]
  - DRY MOUTH [None]
